FAERS Safety Report 7576586-5 (Version None)
Quarter: 2011Q2

REPORT INFORMATION
  Report Type: 
  Country: None (occurrence: None)
  Receive Date: 20110628
  Receipt Date: 20110120
  Transmission Date: 20111010
  Serious: Yes (Other)
  Sender: FDA-Public Use
  Company Number: US-BAYER-201038546NA

PATIENT
  Age: 48 Year
  Sex: Female
  Weight: 69.841 kg

DRUGS (4)
  1. YASMIN [Suspect]
     Indication: PRODUCT USED FOR UNKNOWN INDICATION
     Dosage: UNK
     Route: 048
     Dates: start: 20050901, end: 20070804
  2. ADVIL LIQUI-GELS [Concomitant]
  3. CYMBALTA [Concomitant]
  4. FLEXERIL [Concomitant]

REACTIONS (7)
  - PAIN [None]
  - GALLBLADDER INJURY [None]
  - EMOTIONAL DISTRESS [None]
  - INJURY [None]
  - CHOLECYSTITIS CHRONIC [None]
  - CHOLELITHIASIS [None]
  - SCAR [None]
